FAERS Safety Report 5055481-X (Version None)
Quarter: 2006Q3

REPORT INFORMATION
  Report Type: 
  Country: None (occurrence: None)
  Receive Date: 20060714
  Receipt Date: 20060626
  Transmission Date: 20061208
  Serious: Yes (Hospitalization)
  Sender: FDA-Public Use
  Company Number: US200606005600

PATIENT
  Age: 76 Year
  Sex: Female

DRUGS (7)
  1. FORTEO [Suspect]
     Indication: OSTEOPOROSIS
     Dates: start: 20060116
  2. EVISTA [Suspect]
     Indication: OSTEOPOROSIS
     Dates: end: 20060101
  3. FORTEO [Concomitant]
  4. EVISTA [Suspect]
     Indication: OSTEOPOROSIS
     Dates: end: 20060101
  5. FORTEO [Concomitant]
  6. DIGOXIN [Concomitant]
  7. ATENOLOL [Concomitant]

REACTIONS (6)
  - ATRIAL FIBRILLATION [None]
  - CONDITION AGGRAVATED [None]
  - MYOCARDIAL INFARCTION [None]
  - OSTEOPOROSIS [None]
  - PHARMACEUTICAL PRODUCT COMPLAINT [None]
  - THROMBOSIS [None]
